FAERS Safety Report 7191283-6 (Version None)
Quarter: 2010Q4

REPORT INFORMATION
  Report Type: 
  Country: None (occurrence: None)
  Receive Date: 20101223
  Receipt Date: 20101215
  Transmission Date: 20110411
  Serious: Yes (Hospitalization, Other)
  Sender: FDA-Public Use
  Company Number: VE-GENZYME-CERZ-1001329

PATIENT

DRUGS (1)
  1. CEREZYME [Suspect]
     Indication: GAUCHER'S DISEASE
     Dosage: UNK
     Route: 042
     Dates: start: 20080130

REACTIONS (14)
  - AGITATION [None]
  - BRONCHOPNEUMONIA [None]
  - CYANOSIS [None]
  - DEHYDRATION [None]
  - DIZZINESS [None]
  - FEELING COLD [None]
  - HEADACHE [None]
  - HYPERHIDROSIS [None]
  - PALLOR [None]
  - PALPITATIONS [None]
  - PYREXIA [None]
  - SYNCOPE [None]
  - TACHYCARDIA [None]
  - VOMITING [None]
